FAERS Safety Report 8346694-X (Version None)
Quarter: 2012Q2

REPORT INFORMATION
  Report Type: 
  Country: None (occurrence: None)
  Receive Date: 20120509
  Receipt Date: 20120508
  Transmission Date: 20120825
  Serious: Yes (Death)
  Sender: FDA-Public Use
  Company Number: PHFR2012GB001127

PATIENT
  Sex: Male

DRUGS (2)
  1. ABILIFY [Concomitant]
     Dosage: 20 MG, UNK
  2. CLOZARIL [Suspect]
     Indication: SCHIZOPHRENIA, PARANOID TYPE
     Dosage: UNK UKN, UNK
     Dates: start: 20090112, end: 20110601

REACTIONS (1)
  - COMPLETED SUICIDE [None]
